FAERS Safety Report 12549129 (Version 2)
Quarter: 2016Q3

REPORT INFORMATION
  Report Type: Spontaneous
  Country: CH (occurrence: ZA)
  Receive Date: 20160712
  Receipt Date: 20160803
  Transmission Date: 20161109
  Serious: Yes (Other)
  Sender: FDA-Public Use
  Company Number: CH-LPDUSPRD-20160586

PATIENT

DRUGS (1)
  1. FERINJECT [Suspect]
     Active Substance: FERRIC CARBOXYMALTOSE
     Dosage: UNKNOWN
     Route: 063

REACTIONS (2)
  - Jaundice neonatal [Unknown]
  - Exposure during breast feeding [Unknown]
